FAERS Safety Report 10233194 (Version 1)
Quarter: 2014Q2

REPORT INFORMATION
  Report Type: Spontaneous
  Country: US (occurrence: US)
  Receive Date: 20140612
  Receipt Date: 20140612
  Transmission Date: 20141212
  Serious: Yes (Other)
  Sender: FDA-Public Use
  Company Number: US-BAYER-2014-085660

PATIENT
  Age: 29 Year
  Sex: Female

DRUGS (1)
  1. MIRENA [Suspect]
     Dosage: 20 MCG/24HR, CONT
     Route: 015
     Dates: start: 20120424, end: 20130613

REACTIONS (7)
  - Uterine perforation [None]
  - Device dislocation [None]
  - Medical device complication [None]
  - Pelvic pain [None]
  - Abdominal pain [None]
  - Injury [None]
  - Emotional distress [None]
